FAERS Safety Report 5637731-1 (Version None)
Quarter: 2008Q1

REPORT INFORMATION
  Report Type: 
  Country: None (occurrence: None)
  Receive Date: 20080220
  Receipt Date: 20080208
  Transmission Date: 20080703
  Serious: Yes (Other)
  Sender: FDA-Public Use
  Company Number: DEP_00131_2008

PATIENT
  Sex: Female
  Weight: 49.8957 kg

DRUGS (1)
  1. PROQUIN XR [Suspect]
     Indication: INFECTION PROPHYLAXIS
     Dosage: (500 MG QD ORAL)
     Route: 048
     Dates: start: 20080206, end: 20080207

REACTIONS (3)
  - ASTHENIA [None]
  - CONDITION AGGRAVATED [None]
  - MULTIPLE SCLEROSIS [None]
